FAERS Safety Report 11075443 (Version 1)
Quarter: 2015Q2

REPORT INFORMATION
  Report Type: Spontaneous
  Country: CA (occurrence: CA)
  Receive Date: 20150429
  Receipt Date: 20150429
  Transmission Date: 20150821
  Serious: Yes (Hospitalization, Other)
  Sender: FDA-Public Use
  Company Number: CA-ROCHE-1568576

PATIENT
  Age: 65 Year
  Sex: Female

DRUGS (2)
  1. XELODA [Suspect]
     Active Substance: CAPECITABINE
     Indication: BREAST CANCER METASTATIC
     Route: 065
  2. TYKERB [Suspect]
     Active Substance: LAPATINIB DITOSYLATE
     Indication: BREAST CANCER METASTATIC
     Route: 065

REACTIONS (10)
  - Upper limb fracture [Unknown]
  - Dizziness [Unknown]
  - Metastases to bone [Unknown]
  - Humerus fracture [Unknown]
  - Wound [Unknown]
  - Fall [Unknown]
  - Contusion [Unknown]
  - Inappropriate antidiuretic hormone secretion [Unknown]
  - Electrolyte imbalance [Unknown]
  - Wound dehiscence [Unknown]
